FAERS Safety Report 6884811-9 (Version None)
Quarter: 2010Q3

REPORT INFORMATION
  Report Type: 
  Country: None (occurrence: None)
  Receive Date: 20100729
  Receipt Date: 20070926
  Transmission Date: 20110219
  Serious: Yes (Other)
  Sender: FDA-Public Use
  Company Number: US-PFIZER INC-2007080552

PATIENT
  Sex: Male

DRUGS (2)
  1. CELEBREX [Suspect]
  2. ZANTAC [Concomitant]

REACTIONS (1)
  - MELAENA [None]
